FAERS Safety Report 11529294 (Version 1)
Quarter: 2015Q3

REPORT INFORMATION
  Report Type: Spontaneous
  Country: US (occurrence: None)
  Receive Date: 20150918
  Receipt Date: 20150918
  Transmission Date: 20151125
  Serious: Yes (Other)
  Sender: FDA-Public Use
  Company Number: None

PATIENT
  Age: 73 Year
  Sex: Female
  Weight: 74.84 kg

DRUGS (7)
  1. ASPIRIN. [Concomitant]
     Active Substance: ASPIRIN
  2. MECLIZINE [Concomitant]
     Active Substance: MECLIZINE\MECLIZINE HYDROCHLORIDE
  3. HCTZ [Concomitant]
     Active Substance: HYDROCHLOROTHIAZIDE
  4. MULTIVITAMINS [Concomitant]
     Active Substance: VITAMINS
  5. LEVOXYL [Concomitant]
     Active Substance: LEVOTHYROXINE SODIUM
  6. GAVILYTE - C [Suspect]
     Active Substance: POLYETHYLENE GLYCOL 3350\POTASSIUM CHLORIDE\SODIUM BICARBONATE\SODIUM CHLORIDE\SODIUM SULFATE ANHYDROUS
     Indication: COLONOSCOPY
     Dosage: DRINK 8OZ EVERY 15 MIN UNTIL HA
     Route: 048
     Dates: start: 20150913, end: 20150914
  7. TRIAMTERENE. [Concomitant]
     Active Substance: TRIAMTERENE

REACTIONS (3)
  - Oral pain [None]
  - Glossodynia [None]
  - Oral mucosal eruption [None]

NARRATIVE: CASE EVENT DATE: 20150914
